FAERS Safety Report 21882993 (Version 1)
Quarter: 2023Q1

REPORT INFORMATION
  Report Type: Report from Study
  Country: US (occurrence: US)
  Receive Date: 20230119
  Receipt Date: 20230119
  Transmission Date: 20230417
  Serious: No
  Sender: FDA-Public Use
  Company Number: US-ABBVIE-4244983

PATIENT
  Age: 43 Year

DRUGS (1)
  1. HUMIRA [Suspect]
     Active Substance: ADALIMUMAB
     Indication: Product used for unknown indication
     Route: 058
     Dates: start: 20220930, end: 20221123

REACTIONS (5)
  - Mobility decreased [Unknown]
  - Bone pain [Unknown]
  - Back pain [Unknown]
  - Cold sweat [Unknown]
  - Muscle disorder [Unknown]

NARRATIVE: CASE EVENT DATE: 20221103
